FAERS Safety Report 7497254-4 (Version None)
Quarter: 2011Q2

REPORT INFORMATION
  Report Type: 
  Country: None (occurrence: None)
  Receive Date: 20110523
  Receipt Date: 20110509
  Transmission Date: 20111010
  Serious: Yes (Other)
  Sender: FDA-Public Use
  Company Number: PHHY2011US40347

PATIENT
  Sex: Female

DRUGS (6)
  1. FISH OIL [Concomitant]
  2. POTASSIUM CITRATE [Concomitant]
  3. GINGER [Concomitant]
  4. SANDOSTATIN [Suspect]
     Indication: NEUROENDOCRINE TUMOUR
     Route: 058
     Dates: start: 20110101
  5. MULTI-VITAMINS [Concomitant]
  6. VITAMIN-MINERAL COMPOUND TAB [Concomitant]

REACTIONS (2)
  - MACULAR DEGENERATION [None]
  - POLLAKIURIA [None]
